FAERS Safety Report 14226883 (Version 4)
Quarter: 2018Q1

REPORT INFORMATION
  Report Type: Spontaneous
  Country: BR (occurrence: BR)
  Receive Date: 20171127
  Receipt Date: 20180104
  Transmission Date: 20180508
  Serious: Yes (Hospitalization, Other)
  Sender: FDA-Public Use
  Company Number: BR-PFIZER INC-2017503257

PATIENT
  Age: 83 Year
  Sex: Male

DRUGS (5)
  1. ENALAPRIL [Concomitant]
     Active Substance: ENALAPRIL
     Indication: HYPERTENSION
     Dosage: UNK (IN THE MORNING AND AT NIGHT)
  2. VATIS [Concomitant]
     Dosage: UNK
     Dates: start: 2017
  3. CONCOR [Concomitant]
     Active Substance: BISOPROLOL FUMARATE
     Dosage: UNK UNK, 1X/DAY (IN THE MORNING)
     Dates: start: 2017
  4. XALATAN [Suspect]
     Active Substance: LATANOPROST
     Dosage: 1.5 UG, 1X/DAY, EACH EYE
  5. XALATAN [Suspect]
     Active Substance: LATANOPROST
     Dosage: 1.5 UG, 1X/DAY, EACH EYE

REACTIONS (1)
  - Arrhythmia [Recovering/Resolving]

NARRATIVE: CASE EVENT DATE: 201711
